FAERS Safety Report 7609135-3 (Version None)
Quarter: 2011Q3

REPORT INFORMATION
  Report Type: 
  Country: None (occurrence: None)
  Receive Date: 20110714
  Receipt Date: 20110704
  Transmission Date: 20111222
  Serious: Yes (Death)
  Sender: FDA-Public Use
  Company Number: GB-BAXTER-2011BH021783

PATIENT
  Sex: Female

DRUGS (2)
  1. SODIUM CHLORIDE 0.9% IN PLASTIC CONTAINER [Suspect]
     Indication: RENAL FAILURE ACUTE
     Route: 065
     Dates: start: 20110704, end: 20110704
  2. SODIUM CHLORIDE 0.9% IN PLASTIC CONTAINER [Suspect]
     Indication: OFF LABEL USE
     Route: 065
     Dates: start: 20110704, end: 20110704

REACTIONS (2)
  - WRONG DRUG ADMINISTERED [None]
  - DEATH [None]
